FAERS Safety Report 5644113-5 (Version None)
Quarter: 2008Q1

REPORT INFORMATION
  Report Type: 
  Country: None (occurrence: None)
  Receive Date: 20080226
  Receipt Date: 20080212
  Transmission Date: 20080703
  Serious: Yes (Hospitalization)
  Sender: FDA-Public Use
  Company Number: B0509244A

PATIENT
  Age: 21 Year
  Sex: Female

DRUGS (3)
  1. AUGMENTIN '250' [Suspect]
     Indication: CYSTITIS KLEBSIELLA
     Dosage: ORAL
     Route: 048
     Dates: start: 20071218, end: 20071228
  2. HYDROXYCHLOROQUINE SO4 TABLET (HYDROXYCHLOROQUINE SO4) [Suspect]
     Indication: DRUG USE FOR UNKNOWN INDICATION
     Dosage: ORAL
     Route: 048
     Dates: start: 20071227, end: 20071228
  3. PREDNISONE [Concomitant]

REACTIONS (1)
  - HYPERSENSITIVITY [None]
